FAERS Safety Report 4348441-5 (Version None)
Quarter: 2004Q2

REPORT INFORMATION
  Report Type: 
  Country: None (occurrence: None)
  Receive Date: 20040423
  Receipt Date: 20040409
  Transmission Date: 20050107
  Serious: Yes (Other)
  Sender: FDA-Public Use
  Company Number: 2004S1000076

PATIENT
  Age: 60 Year
  Sex: Male
  Weight: 82 kg

DRUGS (6)
  1. CUBICIN [Suspect]
     Indication: ENDOCARDITIS ENTEROCOCCAL
     Dosage: 4 MG/KG; QD; IV
     Route: 042
     Dates: start: 20040310
  2. GENTAMICIN [Suspect]
     Indication: ENDOCARDITIS ENTEROCOCCAL
     Dosage: 60 MG; Q12H; IV
     Route: 042
     Dates: start: 20040310, end: 20040323
  3. VANCOMYCIN [Concomitant]
  4. VIOXX [Concomitant]
  5. ATENOLOL [Concomitant]
  6. PRILOSEC [Concomitant]

REACTIONS (3)
  - GLOMERULONEPHRITIS [None]
  - NEPHRITIS INTERSTITIAL [None]
  - RENAL TUBULAR NECROSIS [None]
